FAERS Safety Report 17411527 (Version 1)
Quarter: 2020Q1

REPORT INFORMATION
  Report Type: Spontaneous
  Country: US (occurrence: US)
  Receive Date: 20200213
  Receipt Date: 20200213
  Transmission Date: 20200409
  Serious: No
  Sender: FDA-Public Use
  Company Number: US-SHIRE-US202005115

PATIENT
  Age: 59 Year
  Sex: Female

DRUGS (2)
  1. VYVANSE [Suspect]
     Active Substance: LISDEXAMFETAMINE DIMESYLATE
     Indication: MULTIPLE SCLEROSIS
     Dosage: 60 MILLIGRAM, 1X/DAY:QD
     Route: 065
  2. VYVANSE [Suspect]
     Active Substance: LISDEXAMFETAMINE DIMESYLATE
     Dosage: 40 MILLIGRAM, 1X/DAY:QD
     Route: 065

REACTIONS (6)
  - Insomnia [Recovering/Resolving]
  - Intentional product use issue [Unknown]
  - Therapeutic product effect decreased [Unknown]
  - Product dose omission [Unknown]
  - Feeling abnormal [Unknown]
  - Tremor [Unknown]

NARRATIVE: CASE EVENT DATE: 20200117
